FAERS Safety Report 5221133-6 (Version None)
Quarter: 2007Q1

REPORT INFORMATION
  Report Type: 
  Country: None (occurrence: None)
  Receive Date: 20070126
  Receipt Date: 20070111
  Transmission Date: 20070707
  Serious: Yes (Hospitalization)
  Sender: FDA-Public Use
  Company Number: CH-JNJFOC-20070104481

PATIENT
  Age: 6 Decade
  Sex: Female

DRUGS (7)
  1. TRAMADOL HCL [Suspect]
     Indication: PAIN
     Route: 065
  2. MORPHINE [Suspect]
     Indication: PAIN
     Route: 065
  3. BUPRENORPHINE HCL [Suspect]
     Indication: PAIN
     Route: 065
  4. TEMESTA [Suspect]
     Indication: PAIN
     Route: 048
  5. NEURONTIN [Concomitant]
     Indication: PAIN
     Route: 048
  6. LIORESAL [Concomitant]
     Indication: PAIN
     Route: 048
  7. DAFALGAN [Concomitant]
     Indication: PAIN
     Route: 048

REACTIONS (4)
  - APNOEA [None]
  - CONFUSIONAL STATE [None]
  - HALLUCINATION, VISUAL [None]
  - MYOCLONUS [None]
